FAERS Safety Report 15248213 (Version 1)
Quarter: 2018Q3

REPORT INFORMATION
  Report Type: Spontaneous
  Country: US (occurrence: US)
  Receive Date: 20180807
  Receipt Date: 20180807
  Transmission Date: 20181010
  Serious: No
  Sender: FDA-Public Use
  Company Number: US-BAYER-2018-142880

PATIENT
  Sex: Male

DRUGS (2)
  1. MIRALAX [Suspect]
     Active Substance: POLYETHYLENE GLYCOL 3350
     Indication: COLONOSCOPY
     Dosage: ENTIRE BOTTLE
     Route: 048
     Dates: start: 201807
  2. MIRALAX [Suspect]
     Active Substance: POLYETHYLENE GLYCOL 3350
     Indication: COLONOSCOPY
     Dosage: ENTIRE BOTTLE
     Route: 048
     Dates: start: 201807

REACTIONS (3)
  - Dehydration [None]
  - Off label use [Unknown]
  - Product use in unapproved indication [Unknown]
